FAERS Safety Report 16078493 (Version 1)
Quarter: 2019Q1

REPORT INFORMATION
  Report Type: Spontaneous
  Country: JP (occurrence: JP)
  Receive Date: 20190315
  Receipt Date: 20190315
  Transmission Date: 20190418
  Serious: Yes (Hospitalization)
  Sender: FDA-Public Use
  Company Number: JP-ACTELION-A-CH2019-187400

PATIENT
  Age: 61 Year
  Sex: Female

DRUGS (8)
  1. OXYGEN. [Concomitant]
     Active Substance: OXYGEN
     Dosage: 4 L/MIN
     Route: 055
  2. TADALAFIL. [Concomitant]
     Active Substance: TADALAFIL
  3. BOSENTAN. [Suspect]
     Active Substance: BOSENTAN
     Indication: PORTOPULMONARY HYPERTENSION
     Route: 048
  4. UPTRAVI [Suspect]
     Active Substance: SELEXIPAG
     Indication: PORTOPULMONARY HYPERTENSION
     Route: 048
  5. OXYGEN. [Concomitant]
     Active Substance: OXYGEN
     Dosage: 2.2 L/MIN
     Route: 055
  6. EPOPROSTENOL SODIUM. [Suspect]
     Active Substance: EPOPROSTENOL SODIUM
     Indication: PORTOPULMONARY HYPERTENSION
     Route: 042
  7. AMBRISENTAN [Concomitant]
     Active Substance: AMBRISENTAN
  8. OXYGEN. [Concomitant]
     Active Substance: OXYGEN
     Dosage: 3 L/MIN
     Route: 055

REACTIONS (8)
  - Portal shunt procedure [Unknown]
  - Cough [Unknown]
  - Catheterisation cardiac [Unknown]
  - Pulmonary function test [Unknown]
  - Arterial aneurysm repair [Unknown]
  - Dyspnoea exertional [Unknown]
  - Pulmonary artery therapeutic procedure [Unknown]
  - Fatigue [Unknown]
